FAERS Safety Report 17084065 (Version 1)
Quarter: 2019Q4

REPORT INFORMATION
  Report Type: Spontaneous
  Country: DK (occurrence: DK)
  Receive Date: 20191127
  Receipt Date: 20191127
  Transmission Date: 20200122
  Serious: Yes (Hospitalization)
  Sender: FDA-Public Use
  Company Number: DK-MYLANLABS-2019M1115690

PATIENT
  Age: 72 Year
  Sex: Male

DRUGS (4)
  1. HJERTEMAGNYL                       /00002701/ [Concomitant]
     Active Substance: ASPIRIN
     Indication: ANTICOAGULANT THERAPY
     Dosage: STYRKE: 75 MG
     Route: 048
     Dates: start: 20131016
  2. ATORVASTATIN [Concomitant]
     Active Substance: ATORVASTATIN
     Indication: HYPERCHOLESTEROLAEMIA
     Dosage: STYRKE: 20 MG
     Route: 048
     Dates: start: 20181215
  3. METOPROLOL. [Suspect]
     Active Substance: METOPROLOL
     Indication: HYPERTENSION
     Dosage: STYRKE: 100MG OG 25MG
     Route: 048
     Dates: start: 20150509
  4. TERBINAFIN [Interacting]
     Active Substance: TERBINAFINE
     Indication: ONYCHOMYCOSIS
     Dosage: STYRKE: 250MG
     Route: 048
     Dates: start: 20190120, end: 20190225

REACTIONS (3)
  - Chest pain [Unknown]
  - Arrhythmia supraventricular [Unknown]
  - Labelled drug-drug interaction medication error [Unknown]

NARRATIVE: CASE EVENT DATE: 201902
